FAERS Safety Report 22605912 (Version 1)
Quarter: 2023Q2

REPORT INFORMATION
  Report Type: Spontaneous
  Country: ES (occurrence: ES)
  Receive Date: 20230615
  Receipt Date: 20230615
  Transmission Date: 20230721
  Serious: Yes (Other)
  Sender: FDA-Public Use
  Company Number: None

PATIENT
  Age: 68 Year
  Sex: Male

DRUGS (9)
  1. QUETIAPINE [Interacting]
     Active Substance: QUETIAPINE
     Indication: Impulse-control disorder
     Dosage: QUETIAPINA (1136A);
     Dates: start: 20221004, end: 20230509
  2. GABAPENTIN [Interacting]
     Active Substance: GABAPENTIN
     Indication: Product used for unknown indication
     Dosage: GABAPENTINA (2641A);
     Dates: start: 20221004
  3. MIRTAZAPINE [Interacting]
     Active Substance: MIRTAZAPINE
     Indication: Insomnia
     Dosage: MIRTAZAPINA (2704A);
     Dates: start: 20221004, end: 20230509
  4. TRYPTIZOL [Interacting]
     Active Substance: AMITRIPTYLINE HYDROCHLORIDE
     Indication: Behaviour disorder
     Dosage: 24 TABLETS;
     Dates: start: 20221004, end: 20230509
  5. CYTISINICLINE [Interacting]
     Active Substance: CYTISINICLINE
     Indication: Tobacco abuse
     Dosage: TODACITAN 1.5 MG TABLETS EFG, 100 TABLETS
     Dates: start: 20230506, end: 20230509
  6. CLOMETHIAZOLE [Interacting]
     Active Substance: CLOMETHIAZOLE
     Indication: Behaviour disorder
     Dosage: 30 CAPSULES;
     Dates: start: 20221004, end: 20230509
  7. DULOXETINE HYDROCHLORIDE [Interacting]
     Active Substance: DULOXETINE HYDROCHLORIDE
     Indication: Mixed anxiety and depressive disorder
     Dosage: 56 TABLETS;
     Dates: start: 20221004, end: 20230509
  8. ALPRAZOLAM [Interacting]
     Active Substance: ALPRAZOLAM
     Indication: Behaviour disorder
     Dosage: 30 TABLETS;
     Dates: start: 20221004, end: 20230509
  9. LORAZEPAM [Interacting]
     Active Substance: LORAZEPAM
     Indication: Behaviour disorder
     Dosage: LORAZEPAM (1864A);
     Dates: start: 20221004

REACTIONS (4)
  - Asthenia [Recovered/Resolved]
  - Depressed level of consciousness [Recovered/Resolved]
  - Somnolence [Recovered/Resolved]
  - Drug interaction [Unknown]

NARRATIVE: CASE EVENT DATE: 20230507
